FAERS Safety Report 4265924-7 (Version None)
Quarter: 2004Q1

REPORT INFORMATION
  Report Type: 
  Country: None (occurrence: None)
  Receive Date: 20040106
  Receipt Date: 20031222
  Transmission Date: 20041129
  Serious: Yes (Hospitalization)
  Sender: FDA-Public Use
  Company Number: 2003-DE-06466GD

PATIENT
  Age: 71 Year
  Sex: Female

DRUGS (2)
  1. LITHIUM CARBNOATE (LITHIUM CARBONATE) [Suspect]
     Dosage: 600 MG
  2. ROFECOXIB [Suspect]
     Dosage: 25 MG

REACTIONS (7)
  - APATHY [None]
  - DRUG INTERACTION [None]
  - DRUG LEVEL INCREASED [None]
  - GAIT DISTURBANCE [None]
  - HYPERTONIA [None]
  - MOOD ALTERED [None]
  - MYOCLONUS [None]
